FAERS Safety Report 13306203 (Version 1)
Quarter: 2017Q1

REPORT INFORMATION
  Report Type: Report from Study
  Country: US (occurrence: US)
  Receive Date: 20170308
  Receipt Date: 20170308
  Transmission Date: 20170428
  Serious: Yes (Other)
  Sender: FDA-Public Use
  Company Number: US-009507513-1703USA001728

PATIENT
  Age: 54 Year
  Sex: Female

DRUGS (2)
  1. PEMBROLIZUMAB. [Suspect]
     Active Substance: PEMBROLIZUMAB
     Indication: MALIGNANT MELANOMA
     Dosage: STRENGTH: 100MG; UNK, EVERY 3 WEEKS
     Route: 042
     Dates: start: 201507
  2. SYNTHROID [Concomitant]
     Active Substance: LEVOTHYROXINE SODIUM

REACTIONS (9)
  - Oropharyngeal pain [Unknown]
  - Impaired gastric emptying [Unknown]
  - Blood sodium increased [Unknown]
  - Platelet count decreased [Unknown]
  - Gastroenteritis viral [Recovered/Resolved]
  - White blood cell count decreased [Unknown]
  - Blood parathyroid hormone decreased [Unknown]
  - Fatigue [Unknown]
  - Sleep disorder [Unknown]

NARRATIVE: CASE EVENT DATE: 201507
